FAERS Safety Report 5751142-X (Version None)
Quarter: 2008Q2

REPORT INFORMATION
  Report Type: 
  Country: None (occurrence: None)
  Receive Date: 20080520
  Receipt Date: 20070417
  Transmission Date: 20081010
  Serious: No
  Sender: FDA-Public Use
  Company Number: 07H-163-0312459-00

PATIENT
  Age: 63 Year
  Sex: Female
  Weight: 52.1637 kg

DRUGS (5)
  1. DEXTRAN 40 10% IN DEXTROSE 5% [Suspect]
     Indication: ANGIOPLASTY
     Dosage: 6 ML, ONCE, INTRAVENOUS
     Route: 042
     Dates: start: 19900101, end: 19900101
  2. SYNTHROID [Concomitant]
  3. ASPIRIN [Concomitant]
  4. ESTROGEN (ESTROGEN NOS) [Concomitant]
  5. ZESTRIL [Concomitant]

REACTIONS (1)
  - ANAPHYLACTIC REACTION [None]
